FAERS Safety Report 7987551-8 (Version None)
Quarter: 2011Q4

REPORT INFORMATION
  Report Type: 
  Country: None (occurrence: None)
  Receive Date: 20111216
  Receipt Date: 20110411
  Transmission Date: 20120403
  Serious: No
  Sender: FDA-Public Use
  Company Number: US-BRISTOL-MYERS SQUIBB COMPANY-15665870

PATIENT
  Age: 5 Decade
  Sex: Female

DRUGS (4)
  1. TOPAMAX [Concomitant]
  2. ABILIFY [Suspect]
  3. PRISTIQ [Concomitant]
  4. CRESTOR [Concomitant]

REACTIONS (1)
  - DYSKINESIA [None]
